FAERS Safety Report 23997184 (Version 1)
Quarter: 2024Q2

REPORT INFORMATION
  Report Type: Spontaneous
  Country: US (occurrence: US)
  Receive Date: 20240621
  Receipt Date: 20240621
  Transmission Date: 20240716
  Serious: No
  Sender: FDA-Public Use
  Company Number: US-SA-SAC20240613000055

PATIENT
  Sex: Female

DRUGS (1)
  1. DUPIXENT [Suspect]
     Active Substance: DUPILUMAB
     Indication: Nasal polyps
     Dosage: 300 QOW
     Route: 058
     Dates: start: 202207

REACTIONS (6)
  - Neck pain [Unknown]
  - Back pain [Unknown]
  - Weight increased [Unknown]
  - Injection site swelling [Unknown]
  - Arthralgia [Unknown]
  - Drug ineffective [Unknown]
